FAERS Safety Report 7585749-4 (Version None)
Quarter: 2011Q2

REPORT INFORMATION
  Report Type: 
  Country: None (occurrence: None)
  Receive Date: 20110629
  Receipt Date: 20110629
  Transmission Date: 20111010
  Serious: Yes (Hospitalization)
  Sender: FDA-Public Use
  Company Number: None

PATIENT
  Age: 50 Year
  Sex: Female
  Weight: 62.3 kg

DRUGS (17)
  1. DICYCLOMINE [Concomitant]
  2. TESSALON [Concomitant]
  3. VOLTAREN [Concomitant]
  4. ANNUSOL SUPPOSITORY [Concomitant]
  5. NICOTINE [Concomitant]
  6. AVASTIN [Suspect]
     Indication: NON-SMALL CELL LUNG CANCER
     Dosage: 15 MG/KG Q21 DAYS INTRAVENOUS
     Route: 042
     Dates: start: 20100416, end: 20110525
  7. CELEBREX [Concomitant]
  8. VITAMIN B-12 [Concomitant]
  9. DUONEB [Concomitant]
  10. LIDODERM [Concomitant]
  11. COMBIVENT [Concomitant]
  12. MAGNESIUM OXIDE [Concomitant]
  13. LEXAPRO [Concomitant]
  14. KLONOPIN [Concomitant]
  15. LORATADINE [Concomitant]
  16. FOLATE [Concomitant]
  17. OXYCODONE HCL [Concomitant]

REACTIONS (2)
  - PULMONARY EMBOLISM [None]
  - DEEP VEIN THROMBOSIS [None]
